FAERS Safety Report 21412571 (Version 2)
Quarter: 2022Q4

REPORT INFORMATION
  Report Type: Spontaneous
  Country: JP (occurrence: JP)
  Receive Date: 20221005
  Receipt Date: 20221025
  Transmission Date: 20230113
  Serious: Yes (Life-Threatening, Hospitalization, Other)
  Sender: FDA-Public Use
  Company Number: JP-TAKEDA-2022TJP059387

PATIENT
  Age: 78 Year
  Sex: Male
  Weight: 52 kg

DRUGS (8)
  1. ADCETRIS [Suspect]
     Active Substance: BRENTUXIMAB VEDOTIN
     Indication: Angioimmunoblastic T-cell lymphoma
     Dosage: 100 MILLIGRAM, Q3WEEKS
     Route: 041
     Dates: start: 20220426, end: 20220517
  2. ADCETRIS [Suspect]
     Active Substance: BRENTUXIMAB VEDOTIN
     Dosage: 80 MILLIGRAM, Q3WEEKS
     Route: 041
     Dates: start: 20220607
  3. ADRIACIN [Suspect]
     Active Substance: DOXORUBICIN HYDROCHLORIDE
     Indication: Angioimmunoblastic T-cell lymphoma
     Dosage: 66 MILLIGRAM, Q3WEEKS
     Route: 041
     Dates: start: 20220426
  4. CYCLOPHOSPHAMIDE [Suspect]
     Active Substance: CYCLOPHOSPHAMIDE
     Indication: Angioimmunoblastic T-cell lymphoma
     Dosage: 995 MILLIGRAM, Q3WEEKS
     Route: 041
     Dates: start: 20220426
  5. PREDNISOLONE [Suspect]
     Active Substance: PREDNISOLONE
     Indication: Angioimmunoblastic T-cell lymphoma
     Dosage: 80 MILLIGRAM
     Route: 041
     Dates: start: 20220426, end: 20220430
  6. PREDNISOLONE [Suspect]
     Active Substance: PREDNISOLONE
     Dosage: 60 MILLIGRAM
     Route: 041
     Dates: start: 20220517, end: 20220521
  7. PREDNISOLONE [Suspect]
     Active Substance: PREDNISOLONE
     Dosage: 60 MILLIGRAM
     Route: 041
     Dates: start: 20220607, end: 20220611
  8. PREDNISOLONE [Suspect]
     Active Substance: PREDNISOLONE
     Dosage: 60 MILLIGRAM
     Route: 048

REACTIONS (7)
  - Pancytopenia [Recovered/Resolved]
  - Vascular device infection [Recovered/Resolved]
  - Neutrophil count decreased [Recovering/Resolving]
  - Pneumonia [Recovered/Resolved]
  - Platelet count decreased [Not Recovered/Not Resolved]
  - Gallbladder cancer [Recovered/Resolved]
  - White blood cell count decreased [Unknown]

NARRATIVE: CASE EVENT DATE: 20220615
